FAERS Safety Report 4567225-6 (Version None)
Quarter: 2005Q1

REPORT INFORMATION
  Report Type: 
  Country: None (occurrence: None)
  Receive Date: 20050201
  Receipt Date: 20050127
  Transmission Date: 20050727
  Serious: Yes (Hospitalization)
  Sender: FDA-Public Use
  Company Number: FR-BRISTOL-MYERS SQUIBB COMPANY-12842779

PATIENT
  Age: 83 Year
  Sex: Male

DRUGS (10)
  1. SINEMET [Suspect]
     Indication: PARKINSON'S DISEASE
     Route: 048
     Dates: start: 20041101, end: 20041113
  2. IMOVANE [Concomitant]
     Dates: end: 20041110
  3. SEROPRAM [Concomitant]
     Dates: end: 20041112
  4. CELEBREX [Concomitant]
     Dates: end: 20041110
  5. SERETIDE [Concomitant]
     Dates: end: 20041110
  6. IZILOX [Concomitant]
     Dates: end: 20041110
  7. LEPTICUR [Concomitant]
     Dates: end: 20041117
  8. MICARDIS [Concomitant]
     Dates: end: 20041118
  9. ACETAMINOPHEN [Concomitant]
  10. DIGOXIN [Concomitant]
     Dosage: NUMBER OF DOSAGES:  5 OUT OF 7 DAYS.

REACTIONS (3)
  - CONFUSIONAL STATE [None]
  - DYSARTHRIA [None]
  - HALLUCINATION [None]
